FAERS Safety Report 4776862-5 (Version None)
Quarter: 2005Q3

REPORT INFORMATION
  Report Type: 
  Country: None (occurrence: None)
  Receive Date: 20050921
  Receipt Date: 20050921
  Transmission Date: 20060218
  Serious: No
  Sender: FDA-Public Use
  Company Number: None

PATIENT
  Sex: Male
  Weight: 129.2752 kg

DRUGS (2)
  1. NEORAL [Suspect]
     Dosage: BID [LIFELONG]
  2. NEORAL [Suspect]
     Dosage: BID

REACTIONS (1)
  - DRUG LEVEL FLUCTUATING [None]
